FAERS Safety Report 9861862 (Version 1)
Quarter: 2014Q1

REPORT INFORMATION
  Report Type: Spontaneous
  Country: US (occurrence: US)
  Receive Date: 20140203
  Receipt Date: 20140203
  Transmission Date: 20141002
  Serious: No
  Sender: FDA-Public Use
  Company Number: US-PFIZER INC-2014027002

PATIENT
  Sex: Male

DRUGS (2)
  1. CLINDAMYCIN PHOSPHATE [Suspect]
     Dosage: 600 MG, 2X/DAY
     Dates: start: 201401
  2. ROBITUSSIN [Suspect]
     Indication: COUGH
     Dosage: UNK
     Dates: start: 201401

REACTIONS (2)
  - Nausea [Unknown]
  - Abdominal distension [Unknown]
